FAERS Safety Report 12625085 (Version 1)
Quarter: 2016Q3

REPORT INFORMATION
  Report Type: Spontaneous
  Country: IT (occurrence: IT)
  Receive Date: 20160805
  Receipt Date: 20160805
  Transmission Date: 20161109
  Serious: Yes (Other)
  Sender: FDA-Public Use
  Company Number: IT-ROCHE-1809433

PATIENT
  Age: 51 Year
  Sex: Female

DRUGS (4)
  1. VIEKIRAX [Suspect]
     Active Substance: OMBITASVIR\PARITAPREVIR\RITONAVIR
     Indication: CHRONIC HEPATITIS C
     Dosage: 12.5 MG / 75 MG / 50 MG -56 TABLETS
     Route: 048
     Dates: start: 20160520, end: 20160610
  2. XANAX [Concomitant]
     Active Substance: ALPRAZOLAM
     Dosage: 0.50 MG TABLETS^ 20 TABLETS
     Route: 065
  3. EXVIERA [Suspect]
     Active Substance: DASABUVIR
     Indication: CHRONIC HEPATITIS C
     Dosage: 250 MG -BLISTER PACK (PVC/PE/PCTFE/AL)- 56 TABLETS
     Route: 048
     Dates: start: 20160520, end: 20160610
  4. COPEGUS [Suspect]
     Active Substance: RIBAVIRIN
     Indication: CHRONIC HEPATITIS C
     Dosage: 200 MG FILM-COATED TABLETS 42 TABLETS IN A BOTTLE
     Route: 048
     Dates: start: 20160520, end: 20160610

REACTIONS (3)
  - Hepatitis cholestatic [Recovered/Resolved]
  - Diarrhoea [Recovered/Resolved]
  - Asthenia [Recovered/Resolved]

NARRATIVE: CASE EVENT DATE: 20160610
